FAERS Safety Report 5357476-5 (Version None)
Quarter: 2007Q2

REPORT INFORMATION
  Report Type: 
  Country: None (occurrence: None)
  Receive Date: 20070530
  Receipt Date: 20061013
  Transmission Date: 20071010
  Serious: Yes (Other)
  Sender: FDA-Public Use
  Company Number: US_0510122709

PATIENT
  Age: 41 Year
  Sex: Male
  Weight: 127.3 kg

DRUGS (4)
  1. ZYPREXA [Suspect]
     Indication: BIPOLAR DISORDER
     Dosage: 2.5 MG
     Dates: start: 19990401
  2. SEROQUEL [Concomitant]
  3. ABILIFY [Concomitant]
  4. GEODON [Concomitant]

REACTIONS (3)
  - DIABETES MELLITUS NON-INSULIN-DEPENDENT [None]
  - HYPEROSMOLAR STATE [None]
  - PRESCRIBED OVERDOSE [None]
